FAERS Safety Report 10233934 (Version 1)
Quarter: 2014Q2

REPORT INFORMATION
  Report Type: Spontaneous
  Country: GB (occurrence: GB)
  Receive Date: 20140612
  Receipt Date: 20140612
  Transmission Date: 20141212
  Serious: Yes (Other)
  Sender: FDA-Public Use
  Company Number: PHHY2014GB068347

PATIENT
  Age: 48 Year
  Sex: Male
  Weight: 82.55 kg

DRUGS (1)
  1. AMLODIPINE [Suspect]
     Indication: HYPERTENSION
     Dosage: 5 MG, UNK
     Route: 048
     Dates: start: 201310

REACTIONS (9)
  - Flatulence [Recovering/Resolving]
  - Product substitution issue [Unknown]
  - Back pain [Recovering/Resolving]
  - Chest discomfort [Recovered/Resolved]
  - Fatigue [Not Recovered/Not Resolved]
  - Depression [Recovering/Resolving]
  - Abdominal pain [Recovering/Resolving]
  - Chest pain [Recovered/Resolved]
  - Depression [Recovering/Resolving]
